FAERS Safety Report 11107773 (Version 2)
Quarter: 2016Q3

REPORT INFORMATION
  Report Type: Spontaneous
  Country: BR (occurrence: BR)
  Receive Date: 20150512
  Receipt Date: 20160705
  Transmission Date: 20161109
  Serious: Yes (Other)
  Sender: FDA-Public Use
  Company Number: BR-PFIZER INC-2015108980

PATIENT
  Age: 54 Year
  Sex: Female
  Weight: 62 kg

DRUGS (8)
  1. SOMAVERT [Suspect]
     Active Substance: PEGVISOMANT
     Indication: ACROMEGALY
     Dosage: 15 MG, 3X/WEEK
     Dates: start: 2011, end: 2015
  2. SOMAVERT [Suspect]
     Active Substance: PEGVISOMANT
     Indication: INSULIN-LIKE GROWTH FACTOR
     Dosage: 15 MG, 1X/DAY FROM MONDAYS TO WEDNESDAYS
     Dates: start: 201502
  3. LANREOTIDE [Suspect]
     Active Substance: LANREOTIDE
     Indication: INSULIN-LIKE GROWTH FACTOR
     Dosage: (STRENGTH 120MG), UNK
     Dates: start: 201512
  4. PAROXETINE. [Concomitant]
     Active Substance: PAROXETINE
     Indication: DEPRESSION
     Dosage: UNK
     Dates: start: 2010
  5. PROPANOLOL [Concomitant]
     Active Substance: PROPRANOLOL HYDROCHLORIDE
     Indication: HEART RATE INCREASED
     Dosage: UNK
     Dates: start: 2013
  6. SOMAVERT [Suspect]
     Active Substance: PEGVISOMANT
     Dosage: 30 MG, 1X/DAY FROM THURSDAYS TO SUNDAYS
     Dates: start: 201502
  7. RIVOTRIL [Concomitant]
     Active Substance: CLONAZEPAM
     Indication: DEPRESSION
     Dosage: UNK
     Dates: start: 2010
  8. CABERGOLINE. [Suspect]
     Active Substance: CABERGOLINE
     Dosage: 1 TABLET, DAILY

REACTIONS (4)
  - Exophthalmos [Not Recovered/Not Resolved]
  - Hormone level abnormal [Unknown]
  - Drug ineffective [Not Recovered/Not Resolved]
  - Hair growth abnormal [Not Recovered/Not Resolved]

NARRATIVE: CASE EVENT DATE: 2015
